FAERS Safety Report 8521664-7 (Version None)
Quarter: 2012Q3

REPORT INFORMATION
  Report Type: 
  Country: None (occurrence: None)
  Receive Date: 20120719
  Receipt Date: 20120717
  Transmission Date: 20120928
  Serious: Yes (Other)
  Sender: FDA-Public Use
  Company Number: PHHY2012JP061332

PATIENT

DRUGS (3)
  1. EXELON [Suspect]
     Dosage: 9 MG, DAILY
     Route: 062
  2. EXELON [Suspect]
     Dosage: 9 MG, DAILY
     Route: 062
  3. EXELON [Suspect]
     Dosage: 4.5 MG, DAILY
     Route: 062

REACTIONS (1)
  - DEPRESSED LEVEL OF CONSCIOUSNESS [None]
